FAERS Safety Report 11478367 (Version 1)
Quarter: 2015Q3

REPORT INFORMATION
  Report Type: Spontaneous
  Country: US (occurrence: US)
  Receive Date: 20150909
  Receipt Date: 20150909
  Transmission Date: 20151125
  Serious: No
  Sender: FDA-Public Use
  Company Number: US-JAZZ-2014-US-013412

PATIENT
  Age: 39 Year
  Sex: Female
  Weight: 52.15 kg

DRUGS (5)
  1. LOESTRIN NOS [Concomitant]
     Active Substance: ETHINYL ESTRADIOL\NORETHINDRONE ACETATE
     Indication: CONTRACEPTION
     Dosage: UNK
  2. XYREM [Suspect]
     Active Substance: SODIUM OXYBATE
     Indication: NARCOLEPSY
     Dosage: 2.25 G, BID
     Route: 048
     Dates: start: 201410, end: 201410
  3. XYREM [Suspect]
     Active Substance: SODIUM OXYBATE
     Dosage: 2.5 G, BID
     Route: 048
     Dates: start: 201410, end: 201410
  4. XYREM [Suspect]
     Active Substance: SODIUM OXYBATE
     Indication: SOMNOLENCE
     Dosage: 2.75 G, BID
     Route: 048
     Dates: start: 201410, end: 201410
  5. XYREM [Suspect]
     Active Substance: SODIUM OXYBATE
     Dosage: 2.25 G, BID
     Route: 048
     Dates: start: 201410

REACTIONS (6)
  - Gastroenteritis viral [Recovered/Resolved]
  - Choking [Recovered/Resolved]
  - Dizziness [Not Recovered/Not Resolved]
  - Abnormal dreams [Unknown]
  - Nausea [Not Recovered/Not Resolved]
  - Snoring [Not Recovered/Not Resolved]

NARRATIVE: CASE EVENT DATE: 201410
